FAERS Safety Report 8889050 (Version 3)
Quarter: 2013Q1

REPORT INFORMATION
  Report Type: Report from Study
  Country: US (occurrence: US)
  Receive Date: 20121106
  Receipt Date: 20130207
  Transmission Date: 20140127
  Serious: Yes (Hospitalization, Other)
  Sender: FDA-Public Use
  Company Number: US-US-EMD SERONO, INC.-7171608

PATIENT
  Sex: Female

DRUGS (1)
  1. REBIF [Suspect]
     Indication: MULTIPLE SCLEROSIS
     Route: 058
     Dates: start: 20110429

REACTIONS (5)
  - Cystitis [Not Recovered/Not Resolved]
  - Shoulder operation [Unknown]
  - Weight decreased [Unknown]
  - Urinary retention [Recovered/Resolved]
  - Urinary tract infection [Unknown]
